FAERS Safety Report 21790364 (Version 1)
Quarter: 2022Q4

REPORT INFORMATION
  Report Type: Spontaneous
  Country: US (occurrence: US)
  Receive Date: 20221228
  Receipt Date: 20221228
  Transmission Date: 20230113
  Serious: Yes (Life-Threatening, Hospitalization, Other)
  Sender: FDA-Public Use
  Company Number: US-BRISTOL-MYERS SQUIBB COMPANY-2022-158903

PATIENT
  Age: 66 Year

DRUGS (1)
  1. ABECMA [Suspect]
     Active Substance: IDECABTAGENE VICLEUCEL
     Indication: Product used for unknown indication
     Dates: start: 20220928

REACTIONS (3)
  - Mental impairment [Unknown]
  - Dyspnoea [Unknown]
  - Salmonellosis [Unknown]

NARRATIVE: CASE EVENT DATE: 20221012
